FAERS Safety Report 13664962 (Version 2)
Quarter: 2017Q3

REPORT INFORMATION
  Report Type: Spontaneous
  Country: PH (occurrence: PH)
  Receive Date: 20170619
  Receipt Date: 20170803
  Transmission Date: 20171127
  Serious: Yes (Death, Other)
  Sender: FDA-Public Use
  Company Number: PH-009507513-1706PHL001812

PATIENT
  Sex: Female

DRUGS (1)
  1. KEYTRUDA [Suspect]
     Active Substance: PEMBROLIZUMAB

REACTIONS (9)
  - Cerebrovascular accident [Unknown]
  - Metastases to liver [Unknown]
  - Contusion [Unknown]
  - Pulmonary mass [Unknown]
  - Death [Fatal]
  - Abdominal pain [Unknown]
  - Lung abscess [Unknown]
  - Dysphonia [Unknown]
  - Decreased appetite [Unknown]

NARRATIVE: CASE EVENT DATE: 20170731
